FAERS Safety Report 24862395 (Version 1)
Quarter: 2025Q1

REPORT INFORMATION
  Report Type: Report from Study
  Country: US (occurrence: US)
  Receive Date: 20250120
  Receipt Date: 20250120
  Transmission Date: 20250409
  Serious: Yes (Hospitalization)
  Sender: ETON PHARMACEUTICALS, INC
  Company Number: US-ETON PHARMACEUTICALS, INC-2025ETO000004

PATIENT

DRUGS (6)
  1. ALKINDI SPRINKLE [Suspect]
     Active Substance: HYDROCORTISONE
     Indication: Primary adrenal insufficiency
     Dosage: 1 MILLIGRAM, BID
     Route: 048
     Dates: start: 20240829
  2. ALKINDI SPRINKLE [Suspect]
     Active Substance: HYDROCORTISONE
     Dosage: 0.5 MILLIGRAM, QD
     Route: 048
     Dates: start: 20240829
  3. FLUDROCORTISONE [Concomitant]
     Active Substance: FLUDROCORTISONE
     Indication: Product used for unknown indication
  4. HYDROCORTISONE [Concomitant]
     Active Substance: HYDROCORTISONE
     Indication: Product used for unknown indication
  5. SOLU-CORTEF [Concomitant]
     Active Substance: HYDROCORTISONE SODIUM SUCCINATE
     Indication: Product used for unknown indication
  6. POCAPAVIR [Concomitant]
     Active Substance: POCAPAVIR
     Indication: Product used for unknown indication

REACTIONS (2)
  - Oxygen saturation decreased [Recovering/Resolving]
  - Respiratory syncytial virus infection [Recovering/Resolving]
